FAERS Safety Report 9370659 (Version 1)
Quarter: 2013Q2

REPORT INFORMATION
  Report Type: Spontaneous
  Country: US (occurrence: US)
  Receive Date: 20130626
  Receipt Date: 20130626
  Transmission Date: 20140414
  Serious: Yes (Other)
  Sender: FDA-Public Use
  Company Number: US-BAXTER-2013BAX024183

PATIENT
  Age: 2 Year
  Sex: Male

DRUGS (5)
  1. NEXTERONE_AMIODARONE, HYDROCHLORIDE 1.80 MG/ML_SOLUTION FOR INFUSION_B [Suspect]
     Indication: VENTRICULAR TACHYCARDIA
     Route: 040
  2. NEXTERONE_AMIODARONE, HYDROCHLORIDE 1.80 MG/ML_SOLUTION FOR INFUSION_B [Suspect]
     Indication: VENTRICULAR EXTRASYSTOLES
     Route: 040
  3. MORPHINE [Concomitant]
     Indication: PRODUCT USED FOR UNKNOWN INDICATION
     Route: 065
  4. AMPICILLIN [Concomitant]
     Indication: ANTIBIOTIC PROPHYLAXIS
     Route: 065
  5. EPINEPHRINE [Concomitant]
     Indication: PRODUCT USED FOR UNKNOWN INDICATION
     Route: 040

REACTIONS (1)
  - Long QT syndrome [Recovered/Resolved]
